FAERS Safety Report 9142720 (Version 1)
Quarter: 2013Q1

REPORT INFORMATION
  Report Type: Spontaneous
  Country: US (occurrence: US)
  Receive Date: 20130306
  Receipt Date: 20130306
  Transmission Date: 20140127
  Serious: No
  Sender: FDA-Public Use
  Company Number: US-ENDO PHARMACEUTICALS INC.-OPER20110030

PATIENT
  Age: 54 Year
  Sex: Female

DRUGS (4)
  1. OPANA ER 20MG [Suspect]
     Indication: PAIN
     Route: 048
     Dates: start: 20110127, end: 20110128
  2. OPANA [Suspect]
     Indication: PAIN
     Route: 048
     Dates: start: 20110127, end: 20110128
  3. OXYCONTIN [Concomitant]
     Indication: PAIN
     Dosage: UNKNOWN
     Route: 065
  4. OXYCODONE [Concomitant]
     Indication: PAIN
     Dosage: UNKNOWN
     Route: 065

REACTIONS (4)
  - Malaise [Unknown]
  - Abdominal discomfort [Unknown]
  - Headache [Unknown]
  - Drug ineffective [Unknown]
